FAERS Safety Report 22015393 (Version 2)
Quarter: 2023Q1

REPORT INFORMATION
  Report Type: Spontaneous
  Country: TR (occurrence: TR)
  Receive Date: 20230221
  Receipt Date: 20230228
  Transmission Date: 20230418
  Serious: Yes (Hospitalization)
  Sender: FDA-Public Use
  Company Number: TR-002147023-NVSC2023TR036304

PATIENT
  Age: 45 Year
  Sex: Female

DRUGS (4)
  1. TAFINLAR [Suspect]
     Active Substance: DABRAFENIB MESYLATE
     Indication: Malignant melanoma
     Dosage: UNK, BID (2X1) (FOR 6 YEARS)
     Route: 048
  2. TAFINLAR [Suspect]
     Active Substance: DABRAFENIB MESYLATE
     Dosage: 75 MG (1 CAPSUL MORNINGS AND EVENINGS)
     Route: 065
  3. MEKINIST [Suspect]
     Active Substance: TRAMETINIB DIMETHYL SULFOXIDE
     Indication: Malignant melanoma
     Dosage: UNK UNK, QD (HALF OF TABLET PER DAY FOR 6 YEARS)
     Route: 048
  4. MEKINIST [Suspect]
     Active Substance: TRAMETINIB DIMETHYL SULFOXIDE
     Dosage: 2 MG (HALF DAY)
     Route: 065

REACTIONS (6)
  - Metastases to lung [Unknown]
  - Metastases to central nervous system [Unknown]
  - Nervous system cyst [Unknown]
  - Wound [Unknown]
  - Pyrexia [Unknown]
  - Wrong technique in product usage process [Unknown]
